FAERS Safety Report 10472112 (Version 1)
Quarter: 2014Q3

REPORT INFORMATION
  Report Type: Spontaneous
  Country: CA (occurrence: CA)
  Receive Date: 20140924
  Receipt Date: 20140924
  Transmission Date: 20150326
  Serious: Yes (Hospitalization)
  Sender: FDA-Public Use
  Company Number: CA-INDICUS PHARMA-000277

PATIENT
  Age: 28 Year
  Sex: Male

DRUGS (1)
  1. DONEPEZIL/DONEPEZIL HYDROCHLORIDE [Suspect]
     Active Substance: DONEPEZIL
     Dosage: AFTER 2 WEEKS AT 5 MG, THEN INCREASED TO 10 MG.

REACTIONS (4)
  - Judgement impaired [None]
  - Mania [Recovered/Resolved]
  - Diarrhoea [Unknown]
  - Intentional product misuse [Unknown]
